FAERS Safety Report 7563419-6 (Version None)
Quarter: 2011Q2

REPORT INFORMATION
  Report Type: 
  Country: None (occurrence: None)
  Receive Date: 20110622
  Receipt Date: 20110609
  Transmission Date: 20111010
  Serious: Yes (Hospitalization)
  Sender: FDA-Public Use
  Company Number: B0722017B

PATIENT
  Sex: Female

DRUGS (7)
  1. EMBOLEX [Concomitant]
     Indication: PROPHYLAXIS
     Dates: start: 20110531, end: 20110601
  2. PACLITAXEL [Suspect]
     Dosage: 90MGM2 WEEKLY
     Route: 042
     Dates: start: 20101207
  3. BISOPROLOL FUMARATE [Concomitant]
     Indication: HYPERTENSION
     Dates: start: 20091201
  4. IBUPROFEN [Concomitant]
     Indication: PAIN
     Dates: start: 20110601
  5. LAPATINIB [Suspect]
     Dosage: 750MG PER DAY
     Route: 048
     Dates: start: 20101207
  6. PANTAZOL [Concomitant]
     Indication: PROPHYLAXIS
     Dates: start: 20101207
  7. IRON GLUCONATE [Concomitant]
     Dates: start: 20110101

REACTIONS (2)
  - PERIPHERAL MOTOR NEUROPATHY [None]
  - DIZZINESS [None]
